FAERS Safety Report 9332141 (Version 1)
Quarter: 2013Q2

REPORT INFORMATION
  Report Type: Spontaneous
  Country: US (occurrence: US)
  Receive Date: 20130606
  Receipt Date: 20130606
  Transmission Date: 20140414
  Serious: No
  Sender: FDA-Public Use
  Company Number: US-009507513-1306USA002391

PATIENT
  Sex: Female

DRUGS (2)
  1. NEXPLANON [Suspect]
     Indication: CONTRACEPTION
     Dosage: 3 YEAR IMPLANT
     Route: 059
  2. NEXPLANON [Suspect]
     Dosage: UNK
     Route: 059

REACTIONS (4)
  - Device difficult to use [Unknown]
  - Device deployment issue [Unknown]
  - Product quality issue [Unknown]
  - No adverse event [Unknown]
